FAERS Safety Report 18266357 (Version 6)
Quarter: 2021Q2

REPORT INFORMATION
  Report Type: Report from Study
  Country: US (occurrence: IL)
  Receive Date: 20200915
  Receipt Date: 20210422
  Transmission Date: 20210717
  Serious: Yes (Hospitalization)
  Sender: FDA-Public Use
  Company Number: US-KARYOPHARM-2020KPT001067

PATIENT
  Age: 75 Year
  Sex: Female
  Weight: 97.5 kg

DRUGS (16)
  1. ELIQUIS [Concomitant]
     Active Substance: APIXABAN
     Indication: THROMBOSIS PROPHYLAXIS
     Dosage: 2.5 MG, BID
     Route: 048
     Dates: start: 20180921
  2. ARANESP [Concomitant]
     Active Substance: DARBEPOETIN ALFA
     Indication: PRODUCT USED FOR UNKNOWN INDICATION
     Dosage: 150 UG, MONTHLY
     Route: 058
  3. BONDORMIN [Concomitant]
     Active Substance: BROTIZOLAM
     Indication: SLEEP DISORDER
     Dosage: 0.25 MG, QD
     Route: 048
     Dates: start: 20130707
  4. NORMOPRESAN [Concomitant]
     Indication: HYPERTENSION
     Dosage: 0.15 MG, PRN
     Route: 048
     Dates: start: 2010
  5. RAMIPRIL. [Concomitant]
     Active Substance: RAMIPRIL
     Indication: HYPERTENSION
     Dosage: 5 MG, QD
     Route: 048
     Dates: start: 20190423
  6. OMEPRADEX [Concomitant]
     Active Substance: OMEPRAZOLE
     Indication: GASTRITIS PROPHYLAXIS
     Dosage: 20 MG, QD
     Route: 048
     Dates: start: 20160316
  7. SELINEXOR [Suspect]
     Active Substance: SELINEXOR
     Indication: PLASMA CELL MYELOMA
     Dosage: 100 MG, WEEKLY
     Route: 048
     Dates: start: 20200819
  8. DEXAMETHASONE. [Suspect]
     Active Substance: DEXAMETHASONE
     Indication: PLASMA CELL MYELOMA
     Dosage: 40 MG, WEEKLY
     Route: 048
     Dates: start: 20200819
  9. VITAMIN D [COLECALCIFEROL] [Concomitant]
     Active Substance: CHOLECALCIFEROL
     Indication: OSTEOARTHRITIS
     Dosage: 1000 IU, QD
     Route: 048
     Dates: start: 2004
  10. ZOVIRAX [Concomitant]
     Active Substance: ACYCLOVIR
     Indication: PROPHYLAXIS
     Dosage: 200 MG, BID
     Route: 048
     Dates: start: 20121126
  11. AMLOW [Concomitant]
     Active Substance: AMLODIPINE MALEATE
     Indication: HYPERTENSION
     Dosage: 10 MG, QD
     Route: 048
     Dates: start: 20190428
  12. DEXAMETHASONE. [Concomitant]
     Active Substance: DEXAMETHASONE
     Indication: STEROID WITHDRAWAL SYNDROME
     Dosage: 8 MG, WEEKLY
     Route: 048
     Dates: start: 20200826, end: 20201111
  13. LYRICA [Concomitant]
     Active Substance: PREGABALIN
     Indication: NEUROPATHY PERIPHERAL
     Dosage: 50 MG, QD
     Route: 048
     Dates: start: 20170316
  14. RESPRIM [Concomitant]
     Active Substance: SULFAMETHOXAZOLE\TRIMETHOPRIM
     Indication: PROPHYLAXIS
     Dosage: 800/160 MG, 2X/WEEK
     Route: 048
     Dates: start: 2013
  15. LOPRESSOR [Concomitant]
     Active Substance: METOPROLOL TARTRATE
     Indication: HYPERTENSION
     Dosage: 100 MG, QD
     Route: 048
     Dates: start: 2010
  16. ELATROLET [Concomitant]
     Active Substance: AMITRIPTYLINE HYDROCHLORIDE
     Indication: NEUROPATHY PERIPHERAL
     Dosage: 10 MG, QD
     Route: 048
     Dates: start: 20180402

REACTIONS (1)
  - Pyrexia [Recovered/Resolved]

NARRATIVE: CASE EVENT DATE: 20200905
